FAERS Safety Report 4819290-6 (Version None)
Quarter: 2005Q4

REPORT INFORMATION
  Report Type: 
  Country: None (occurrence: None)
  Receive Date: 20051012
  Receipt Date: 20050725
  Transmission Date: 20060501
  Serious: No
  Sender: FDA-Public Use
  Company Number: A03200502310

PATIENT
  Age: 65 Year
  Sex: Male

DRUGS (2)
  1. UROXATRAL [Suspect]
     Indication: PROSTATE EXAMINATION ABNORMAL
     Dosage: ORAL
     Route: 048
     Dates: start: 20050701
  2. OMEPRAZOLE [Concomitant]

REACTIONS (1)
  - EAR DISCOMFORT [None]
